FAERS Safety Report 15907161 (Version 2)
Quarter: 2019Q1

REPORT INFORMATION
  Report Type: Spontaneous
  Country: US (occurrence: US)
  Receive Date: 20190204
  Receipt Date: 20190212
  Transmission Date: 20190417
  Serious: No
  Sender: FDA-Public Use
  Company Number: US-PFIZER INC-2019041562

PATIENT
  Age: 64 Year
  Sex: Female
  Weight: 63.5 kg

DRUGS (4)
  1. EUCRISA [Suspect]
     Active Substance: CRISABOROLE
     Dosage: UNK
  2. EUCRISA [Suspect]
     Active Substance: CRISABOROLE
     Indication: ECZEMA
     Dosage: UNK UNK, 2X/DAY (APPLY TWICE DAILY TO AFFECTED AREAS)
     Dates: start: 201809, end: 201809
  3. EUCRISA [Suspect]
     Active Substance: CRISABOROLE
     Indication: PRURITUS
     Dosage: UNK UNK, 1X/DAY
  4. EUCRISA [Suspect]
     Active Substance: CRISABOROLE
     Dosage: UNK

REACTIONS (6)
  - Application site burn [Unknown]
  - Eczema [Unknown]
  - Application site pain [Unknown]
  - Application site erythema [Unknown]
  - Osteoarthritis [Unknown]
  - Dry skin [Unknown]

NARRATIVE: CASE EVENT DATE: 201809
